FAERS Safety Report 7900194-7 (Version None)
Quarter: 2011Q4

REPORT INFORMATION
  Report Type: 
  Country: None (occurrence: None)
  Receive Date: 20111108
  Receipt Date: 20111029
  Transmission Date: 20120403
  Serious: Yes (Hospitalization)
  Sender: FDA-Public Use
  Company Number: BR-PAR PHARMACEUTICAL, INC-2011SCPR003395

PATIENT

DRUGS (2)
  1. CAPTOPRIL [Interacting]
     Indication: HYPERTENSION
     Dosage: UNK, UNKNOWN
     Route: 065
  2. DEXAMETHASONE [Suspect]
     Indication: PRODUCT USED FOR UNKNOWN INDICATION
     Dosage: UNK, UNKNOWN
     Route: 065

REACTIONS (2)
  - DRUG INTERACTION [None]
  - HYPERTENSION [None]
